FAERS Safety Report 23371289 (Version 2)
Quarter: 2024Q1

REPORT INFORMATION
  Report Type: Report from Study
  Country: DE (occurrence: DE)
  Receive Date: 20240105
  Receipt Date: 20240109
  Transmission Date: 20240410
  Serious: Yes (Hospitalization, Other)
  Sender: FDA-Public Use
  Company Number: DE-BAXTER-2024BAX009796

PATIENT
  Age: 57 Year
  Sex: Male

DRUGS (9)
  1. AMINO ACIDS\DEXTROSE\ELECTROLYTES NOS\SOYBEAN OIL [Suspect]
     Active Substance: AMINO ACIDS\DEXTROSE\ELECTROLYTES NOS\SOYBEAN OIL
     Indication: Malabsorption
     Dosage: 1435 ML, 3 TIMES PER WEEK VIA BROVIAC
     Route: 042
     Dates: start: 20231031, end: 20231228
  2. AMINO ACIDS\DEXTROSE\ELECTROLYTES NOS\SOYBEAN OIL [Suspect]
     Active Substance: AMINO ACIDS\DEXTROSE\ELECTROLYTES NOS\SOYBEAN OIL
     Indication: Dyspepsia
  3. VITAMINS [Suspect]
     Active Substance: VITAMINS
     Indication: Malabsorption
     Dosage: AT AN UNSPECIFIED DOSE 3 TIMES PER WEEK VIA BROVIAC
     Route: 042
     Dates: start: 20231031, end: 20231228
  4. VITAMINS [Suspect]
     Active Substance: VITAMINS
     Indication: Dyspepsia
  5. ERGOCALCIFEROL\PHYTONADIONE\RETINOL\TOCOPHEROL [Suspect]
     Active Substance: ERGOCALCIFEROL\PHYTONADIONE\RETINOL\TOCOPHEROL
     Indication: Malabsorption
     Dosage: AT AN UNSPECIFIED DOSE 3 TIMES PER WEEK VIA BROVIAC
     Route: 042
     Dates: start: 20231031, end: 20231228
  6. ERGOCALCIFEROL\PHYTONADIONE\RETINOL\TOCOPHEROL [Suspect]
     Active Substance: ERGOCALCIFEROL\PHYTONADIONE\RETINOL\TOCOPHEROL
     Indication: Dyspepsia
  7. ELECTROLYTES NOS\MINERALS [Suspect]
     Active Substance: ELECTROLYTES NOS\MINERALS
     Indication: Malabsorption
     Dosage: (MANUFACTURER: LABORATOIRE AGUETTANT S.A.S.), AT AN UNSPECIFIED DOSE 3 TIMES PER WEEK VIA BROVIAC
     Route: 042
     Dates: start: 20231031, end: 20231228
  8. ELECTROLYTES NOS\MINERALS [Suspect]
     Active Substance: ELECTROLYTES NOS\MINERALS
     Indication: Dyspepsia
  9. UNSPECIFIED INGREDIENT [Suspect]
     Active Substance: UNSPECIFIED INGREDIENT
     Route: 065

REACTIONS (14)
  - Seizure [Recovered/Resolved]
  - Abnormal faeces [Recovered/Resolved]
  - Sepsis [Unknown]
  - Fatigue [Recovered/Resolved]
  - Amnesia [Unknown]
  - Decreased appetite [Unknown]
  - Weight decreased [Unknown]
  - Sense of oppression [Recovered/Resolved]
  - Chest discomfort [Recovered/Resolved]
  - Gastrointestinal pain [Unknown]
  - Abdominal pain upper [Recovered/Resolved]
  - Abdominal pain [Recovered/Resolved]
  - Fear [Unknown]
  - Lacrimation increased [Unknown]

NARRATIVE: CASE EVENT DATE: 20231224
